FAERS Safety Report 15286787 (Version 2)
Quarter: 2018Q4

REPORT INFORMATION
  Report Type: Report from Study
  Country: JP (occurrence: JP)
  Receive Date: 20180816
  Receipt Date: 20181010
  Transmission Date: 20190204
  Serious: Yes (Death, Life-Threatening, Hospitalization, Other)
  Sender: FDA-Public Use
  Company Number: JP-BRISTOL-MYERS SQUIBB COMPANY-BMS-2018-074868

PATIENT
  Age: 64 Year
  Sex: Male
  Weight: 45.5 kg

DRUGS (19)
  1. NITROPEN [Concomitant]
     Active Substance: NITROGLYCERIN
     Indication: ANGINA PECTORIS
     Dosage: 2 TAB, BID
     Route: 048
     Dates: start: 20180727
  2. OXYCONTIN [Concomitant]
     Active Substance: OXYCODONE HYDROCHLORIDE
     Indication: TUMOUR PAIN
     Dosage: 2 TAB, BID
     Route: 048
     Dates: start: 20180928
  3. INTRALIPOS [Concomitant]
     Active Substance: SOYBEAN OIL
     Indication: HYPOALBUMINAEMIA
     Dosage: 10 %, QD
     Route: 042
     Dates: start: 20180925
  4. FERROUS SULFATE. [Concomitant]
     Active Substance: FERROUS SULFATE
     Indication: ANAEMIA PROPHYLAXIS
     Dosage: 1 TAB, QD
     Route: 048
     Dates: start: 20180518
  5. THYRADIN-S [Concomitant]
     Active Substance: LEVOTHYROXINE
     Indication: HYPOTHYROIDISM
     Dosage: 1 TAB, QD
     Route: 048
     Dates: start: 20180110
  6. PANVITAN                           /05664201/ [Concomitant]
     Active Substance: VITAMINS
     Indication: HYPOALBUMINAEMIA
     Dosage: 1 DF: 1 PACK, QD
     Route: 048
     Dates: start: 20180817
  7. HACHIAZULE                         /00317302/ [Concomitant]
     Indication: STOMATITIS
     Dosage: 1 DF5 PACK AND 5 TIMES PER DAY, UNK
     Route: 048
     Dates: start: 20180912
  8. PACLITAXEL. [Suspect]
     Active Substance: PACLITAXEL
     Indication: NON-SMALL CELL LUNG CANCER
     Dosage: 150 MG/M2, UNK
     Route: 065
  9. TAKECAB [Concomitant]
     Active Substance: VONOPRAZAN FUMURATE
     Indication: GASTRITIS
     Dosage: 10 MG, QD
     Route: 048
     Dates: start: 20180822
  10. NIVOLUMAB [Suspect]
     Active Substance: NIVOLUMAB
     Indication: NON-SMALL CELL LUNG CANCER
     Dosage: 360 MG, UNK
     Route: 065
     Dates: start: 20171012
  11. ZOLPIDEM [Concomitant]
     Active Substance: ZOLPIDEM\ZOLPIDEM TARTRATE
     Indication: INSOMNIA
     Dosage: 5 MG, QD
     Route: 048
     Dates: start: 20180914
  12. ACARBOSE. [Concomitant]
     Active Substance: ACARBOSE
     Indication: DIABETES MELLITUS MANAGEMENT
     Dosage: 1.5 TAB, QD
     Route: 048
     Dates: start: 20180924
  13. BEVACIZUMAB. [Suspect]
     Active Substance: BEVACIZUMAB
     Indication: NON-SMALL CELL LUNG CANCER
     Dosage: 15 MG/KG, UNK
     Route: 065
     Dates: start: 20171012
  14. NITRENDIPINE [Concomitant]
     Active Substance: NITRENDIPINE
     Indication: HYPERTENSION
     Dosage: 1 TAB, QD
     Route: 048
     Dates: start: 20170915
  15. DERMOSOL                           /00008503/ [Concomitant]
     Indication: RASH
     Dosage: UNK, PRN
     Route: 062
     Dates: start: 20180518
  16. LOCOID [Concomitant]
     Active Substance: HYDROCORTISONE BUTYRATE
     Indication: RASH
     Dosage: UNK, PRN
     Route: 062
     Dates: start: 20171218
  17. SLOW-K [Concomitant]
     Active Substance: POTASSIUM CHLORIDE
     Indication: HYPOKALAEMIA
     Dosage: 100 MG, BID
     Route: 048
     Dates: start: 20180822
  18. CARBOPLATIN. [Suspect]
     Active Substance: CARBOPLATIN
     Indication: NON-SMALL CELL LUNG CANCER
     Dosage: 5 OTHER, UNK
     Route: 065
     Dates: start: 20171012
  19. GLACTIV [Concomitant]
     Active Substance: SITAGLIPTIN
     Indication: DIABETES MELLITUS MANAGEMENT
     Dosage: 2 TAB, QD
     Route: 048
     Dates: start: 20180922

REACTIONS (3)
  - Pneumonia [Fatal]
  - Disseminated intravascular coagulation [Fatal]
  - Pneumonitis [Fatal]

NARRATIVE: CASE EVENT DATE: 20180730
